FAERS Safety Report 25593880 (Version 1)
Quarter: 2025Q3

REPORT INFORMATION
  Report Type: Spontaneous
  Country: US (occurrence: US)
  Receive Date: 20250723
  Receipt Date: 20250723
  Transmission Date: 20251020
  Serious: No
  Sender: SANOFI AVENTIS
  Company Number: US-SA-2025SA207093

PATIENT
  Age: 54 Year
  Sex: Female
  Weight: 53.52 kg

DRUGS (6)
  1. DUPIXENT [Suspect]
     Active Substance: DUPILUMAB
     Indication: Dermatitis atopic
     Dosage: 300 MG, QOW
     Route: 058
  2. VALACYCLOVIR [Concomitant]
     Active Substance: VALACYCLOVIR HYDROCHLORIDE
  3. FLUOCINONIDE [Concomitant]
     Active Substance: FLUOCINONIDE
  4. MELOXICAM [Concomitant]
     Active Substance: MELOXICAM
  5. OSELTAMIVIR PHOSPHATE [Concomitant]
     Active Substance: OSELTAMIVIR PHOSPHATE
  6. BENZONATATE [Concomitant]
     Active Substance: BENZONATATE

REACTIONS (3)
  - Dry skin [Recovering/Resolving]
  - Sleep disorder due to a general medical condition [Recovering/Resolving]
  - Pruritus [Recovering/Resolving]

NARRATIVE: CASE EVENT DATE: 20250701
